FAERS Safety Report 5041281-3 (Version None)
Quarter: 2006Q2

REPORT INFORMATION
  Report Type: 
  Country: None (occurrence: None)
  Receive Date: 20060623
  Receipt Date: 20060612
  Transmission Date: 20061013
  Serious: Yes (Death, Other)
  Sender: FDA-Public Use
  Company Number: MEDI-0003052

PATIENT
  Age: 65 Year
  Sex: Male

DRUGS (5)
  1. ETHYOL [Suspect]
     Indication: CHEMOTHERAPY
     Dosage: 5 IN 1 WK, INTRAVENOUS
     Route: 042
  2. ETHYOL [Suspect]
     Indication: RADIOTHERAPY
     Dosage: 5 IN 1 WK, INTRAVENOUS
     Route: 042
  3. RADIATION THERAPY [Concomitant]
  4. CISPLATIN [Concomitant]
  5. FLUOROURACIL [Concomitant]

REACTIONS (7)
  - DERMATITIS [None]
  - DRUG INEFFECTIVE [None]
  - FACE OEDEMA [None]
  - FISTULA [None]
  - MUCOSAL INFLAMMATION [None]
  - PHARYNGITIS [None]
  - SOFT TISSUE DISORDER [None]
